FAERS Safety Report 20758401 (Version 1)
Quarter: 2022Q2

REPORT INFORMATION
  Report Type: Spontaneous
  Country: US (occurrence: None)
  Receive Date: 20220427
  Receipt Date: 20220427
  Transmission Date: 20220721
  Serious: Yes (Hospitalization)
  Sender: FDA-Public Use
  Company Number: None

PATIENT

DRUGS (2)
  1. GENTAMICIN SULFATE [Suspect]
     Active Substance: GENTAMICIN SULFATE
  2. GENTAMICIN SULFATE [Suspect]
     Active Substance: GENTAMICIN SULFATE

REACTIONS (4)
  - Product selection error [None]
  - Product preparation error [None]
  - Incorrect dose administered [None]
  - Drug monitoring procedure not performed [None]
